FAERS Safety Report 5793373-9 (Version None)
Quarter: 2008Q2

REPORT INFORMATION
  Report Type: 
  Country: None (occurrence: None)
  Receive Date: 20080627
  Receipt Date: 20080616
  Transmission Date: 20081010
  Serious: Yes (Hospitalization)
  Sender: FDA-Public Use
  Company Number: BR-ROCHE-570912

PATIENT
  Sex: Male

DRUGS (1)
  1. ROACUTAN [Suspect]
     Indication: ACNE
     Route: 048
     Dates: start: 20080519, end: 20080603

REACTIONS (6)
  - ACNE [None]
  - BLOOD AMYLASE INCREASED [None]
  - BLOOD TEST ABNORMAL [None]
  - FULL BLOOD COUNT ABNORMAL [None]
  - NAUSEA [None]
  - VOMITING [None]
